FAERS Safety Report 7407347-5 (Version None)
Quarter: 2011Q2

REPORT INFORMATION
  Report Type: 
  Country: None (occurrence: None)
  Receive Date: 20110411
  Receipt Date: 20110329
  Transmission Date: 20111010
  Serious: Yes (Hospitalization)
  Sender: FDA-Public Use
  Company Number: US-ELI_LILLY_AND_COMPANY-US201011007208

PATIENT
  Sex: Female

DRUGS (2)
  1. FORTEO [Suspect]
     Indication: OSTEOPOROSIS
     Dosage: 20 UG, DAILY (1/D)
     Route: 065
     Dates: start: 20101124
  2. FORTEO [Suspect]
     Dosage: 20 UG, QD
     Route: 065

REACTIONS (6)
  - INJECTION SITE HAEMATOMA [None]
  - MALAISE [None]
  - BACK PAIN [None]
  - DRUG DOSE OMISSION [None]
  - INFLAMMATION [None]
  - INJECTION SITE ERYTHEMA [None]
